FAERS Safety Report 7278116-4 (Version None)
Quarter: 2011Q1

REPORT INFORMATION
  Report Type: 
  Country: None (occurrence: None)
  Receive Date: 20110207
  Receipt Date: 20110204
  Transmission Date: 20110831
  Serious: Yes (Hospitalization)
  Sender: FDA-Public Use
  Company Number: A0760193A

PATIENT
  Age: 71 Year
  Sex: Male
  Weight: 97.3 kg

DRUGS (19)
  1. BENICAR [Concomitant]
  2. LIPITOR [Concomitant]
     Route: 048
  3. AZILECT [Concomitant]
  4. GLIPIZIDE [Concomitant]
     Route: 048
  5. FOLIC ACID [Concomitant]
  6. REQUIP [Suspect]
     Indication: PARKINSON'S DISEASE
     Dosage: 2MG THREE TIMES PER DAY
     Route: 048
     Dates: start: 20070601, end: 20080201
  7. DIOVAN [Concomitant]
  8. LACTOBACILLUS ACIDOPHILUS [Concomitant]
  9. OMEPRAZOLE [Concomitant]
  10. AMLODIPINE [Concomitant]
  11. METOPROLOL [Concomitant]
  12. BUMETANIDE [Concomitant]
  13. PLAVIX [Concomitant]
     Route: 048
  14. JANUVIA [Concomitant]
  15. NIASPAN [Concomitant]
     Route: 048
  16. LOMOTIL [Concomitant]
  17. UNSPECIFIED MEDICATION [Concomitant]
  18. REQUIP XL [Suspect]
     Indication: PARKINSON'S DISEASE
     Dosage: 6MG PER DAY
     Route: 048
     Dates: start: 20070101
  19. HYTRIN [Concomitant]

REACTIONS (4)
  - SOMNOLENCE [None]
  - BALANCE DISORDER [None]
  - MOBILITY DECREASED [None]
  - FALL [None]
